FAERS Safety Report 9710331 (Version 1)
Quarter: 2013Q4

REPORT INFORMATION
  Report Type: Spontaneous
  Country: US (occurrence: US)
  Receive Date: 20131126
  Receipt Date: 20131126
  Transmission Date: 20140711
  Serious: No
  Sender: FDA-Public Use
  Company Number: US-BRISTOL-MYERS SQUIBB COMPANY-18798645

PATIENT
  Age: 58 Year
  Sex: Female
  Weight: 90.7 kg

DRUGS (3)
  1. BYETTA [Suspect]
     Dosage: INCREASED TO 10MICROGRAM
  2. METFORMIN HCL [Suspect]
  3. GLIPIRIDE [Suspect]

REACTIONS (2)
  - Weight decreased [Not Recovered/Not Resolved]
  - Nausea [Not Recovered/Not Resolved]
